FAERS Safety Report 8307808-0 (Version None)
Quarter: 2012Q2

REPORT INFORMATION
  Report Type: 
  Country: None (occurrence: None)
  Receive Date: 20120424
  Receipt Date: 20120417
  Transmission Date: 20120825
  Serious: Yes (Other)
  Sender: FDA-Public Use
  Company Number: US-TEVA-334025USA

PATIENT
  Sex: Female

DRUGS (3)
  1. COPAXONE [Suspect]
     Indication: MULTIPLE SCLEROSIS
     Dosage: 20 MILLIGRAM;
     Route: 058
     Dates: start: 20120321
  2. OMEPRAZOLE [Concomitant]
  3. CETIRIZINE HYDROCHLORIDE [Concomitant]

REACTIONS (6)
  - VISUAL ACUITY REDUCED [None]
  - FLUSHING [None]
  - DIZZINESS [None]
  - HEADACHE [None]
  - APHASIA [None]
  - PHOTOPHOBIA [None]
